FAERS Safety Report 6937452-9 (Version None)
Quarter: 2010Q3

REPORT INFORMATION
  Report Type: 
  Country: None (occurrence: None)
  Receive Date: 20100823
  Receipt Date: 20100816
  Transmission Date: 20110219
  Serious: Yes (Other)
  Sender: FDA-Public Use
  Company Number: US-ROCHE-704206

PATIENT
  Sex: Female

DRUGS (3)
  1. AVASTIN [Suspect]
     Route: 042
     Dates: start: 20090101
  2. HERCEPTIN [Suspect]
     Dosage: 3 WEEKS ON 1 WEEK OFF
     Route: 042
     Dates: start: 20020101
  3. XELODA [Suspect]
     Indication: PRODUCT USED FOR UNKNOWN INDICATION
     Dosage: 1 WEEK ON, 1 WEEK OFF
     Route: 065

REACTIONS (4)
  - BLOOD PRESSURE INCREASED [None]
  - CONTUSION [None]
  - EPISTAXIS [None]
  - HEPATIC LESION [None]
